FAERS Safety Report 6749240-7 (Version None)
Quarter: 2010Q2

REPORT INFORMATION
  Report Type: 
  Country: None (occurrence: None)
  Receive Date: 20100601
  Receipt Date: 20100517
  Transmission Date: 20101027
  Serious: Yes (Other)
  Sender: FDA-Public Use
  Company Number: US-ASTRAZENECA-2009SE14647

PATIENT
  Age: 20737 Day
  Sex: Female
  Weight: 91.6 kg

DRUGS (9)
  1. SEROQUEL [Suspect]
     Route: 048
  2. AMBIEN [Concomitant]
     Dates: start: 20081007
  3. ASPIRIN [Concomitant]
     Dates: start: 20081007
  4. ATENOL [Concomitant]
     Dates: start: 20081007
  5. CYMBALTA [Concomitant]
     Dates: start: 20081007
  6. DITROPAN XL [Concomitant]
     Dates: start: 20081007
  7. HCTZ [Concomitant]
     Dates: start: 20081007
  8. LISINOPRIL [Concomitant]
     Dates: start: 20081007
  9. VYTORIN [Concomitant]
     Dosage: 10/20 MG AT NIGHT
     Dates: start: 20081007

REACTIONS (2)
  - DIABETES MELLITUS [None]
  - DIABETIC NEUROPATHY [None]
